FAERS Safety Report 5898431-6 (Version None)
Quarter: 2008Q3

REPORT INFORMATION
  Report Type: 
  Country: None (occurrence: None)
  Receive Date: 20080925
  Receipt Date: 20071218
  Transmission Date: 20090109
  Serious: No
  Sender: FDA-Public Use
  Company Number: A0691032A

PATIENT
  Age: 53 Year
  Sex: Female

DRUGS (5)
  1. WELLBUTRIN XL [Suspect]
     Indication: ANXIETY
     Route: 048
     Dates: start: 20070801
  2. BUPROPION HYDROCHLORIDE [Suspect]
     Indication: ANXIETY
     Dosage: 150MG PER DAY
     Route: 048
     Dates: start: 20070801
  3. KLONOPIN [Concomitant]
  4. SYNTHROID [Concomitant]
  5. ASPIRIN [Concomitant]

REACTIONS (5)
  - ANXIETY [None]
  - CRYING [None]
  - DEPRESSED MOOD [None]
  - IRRITABILITY [None]
  - RETINAL TEAR [None]
